FAERS Safety Report 6741546-0 (Version None)
Quarter: 2010Q2

REPORT INFORMATION
  Report Type: 
  Country: None (occurrence: None)
  Receive Date: 20100526
  Receipt Date: 20100518
  Transmission Date: 20101027
  Serious: Yes (Hospitalization)
  Sender: FDA-Public Use
  Company Number: DE-ABBOTT-10P-062-0637776-00

PATIENT
  Age: 26 Year
  Sex: Female
  Weight: 57 kg

DRUGS (7)
  1. HUMIRA [Suspect]
     Indication: PSORIASIS
     Route: 058
     Dates: start: 20091211
  2. HUMIRA [Suspect]
     Dates: end: 20100113
  3. CYCLOSPORINE [Concomitant]
     Indication: PSORIASIS
  4. FUMARIC ACID [Concomitant]
     Indication: PSORIASIS
  5. METHOTREXATE [Concomitant]
     Indication: PSORIASIS
  6. GLUCOCORTICOIDS [Concomitant]
     Indication: PSORIASIS
  7. DAIVONEX [Concomitant]
     Indication: PSORIASIS

REACTIONS (4)
  - ANGINA PECTORIS [None]
  - DYSPNOEA [None]
  - SWELLING [None]
  - VISUAL IMPAIRMENT [None]
